FAERS Safety Report 8729710 (Version 2)
Quarter: 2015Q2

REPORT INFORMATION
  Report Type: Report from Study
  Country: US (occurrence: US)
  Receive Date: 20120817
  Receipt Date: 20150629
  Transmission Date: 20150821
  Serious: Yes (Hospitalization, Other)
  Sender: FDA-Public Use
  Company Number: US-ROCHE-1098876

PATIENT
  Age: 61 Year
  Sex: Female

DRUGS (12)
  1. AMINOPHYLLIN [Concomitant]
     Active Substance: AMINOPHYLLINE
     Route: 042
  2. ACTIVASE [Suspect]
     Active Substance: ALTEPLASE
     Route: 042
  3. TAGAMET [Concomitant]
     Active Substance: CIMETIDINE
     Route: 065
  4. BENADRYL [Concomitant]
     Active Substance: DIPHENHYDRAMINE HYDROCHLORIDE
     Route: 065
  5. ACTIVASE [Suspect]
     Active Substance: ALTEPLASE
     Route: 042
  6. PHENERGAN [Concomitant]
     Active Substance: PROMETHAZINE HYDROCHLORIDE
     Route: 042
  7. HEPARIN [Concomitant]
     Active Substance: HEPARIN SODIUM
     Route: 065
  8. PROCARDIA XL [Concomitant]
     Active Substance: NIFEDIPINE
     Route: 048
  9. ASPIRIN. [Concomitant]
     Active Substance: ASPIRIN
     Route: 048
  10. ACTIVASE [Suspect]
     Active Substance: ALTEPLASE
     Indication: MYOCARDIAL INFARCTION
     Route: 042
  11. TRIDIL [Concomitant]
     Active Substance: NITROGLYCERIN
     Route: 065
  12. VANCOMYCIN [Concomitant]
     Active Substance: VANCOMYCIN

REACTIONS (11)
  - Electrocardiogram change [Unknown]
  - Acute respiratory distress syndrome [Unknown]
  - Cardiogenic shock [Unknown]
  - Metabolic acidosis [Unknown]
  - Blood pressure decreased [Unknown]
  - Atrioventricular block complete [Unknown]
  - Respiratory failure [Unknown]
  - Anaemia [Unknown]
  - Limb discomfort [Unknown]
  - Chest pain [Unknown]
  - Myocardial infarction [Unknown]
